FAERS Safety Report 8031611-2 (Version None)
Quarter: 2012Q1

REPORT INFORMATION
  Report Type: 
  Country: None (occurrence: None)
  Receive Date: 20120109
  Receipt Date: 20120103
  Transmission Date: 20120608
  Serious: Yes (Other)
  Sender: FDA-Public Use
  Company Number: PHHY2012ES001361

PATIENT
  Age: 61 Year
  Sex: Male

DRUGS (3)
  1. AVASTIN [Suspect]
     Indication: RECTAL CANCER
     Dosage: 25 MG/ML, UNK
     Dates: start: 20101124
  2. FLUOROURACIL [Suspect]
     Indication: RECTAL CANCER
     Dosage: 5488 MG, UNK
     Route: 042
     Dates: start: 20101124, end: 20110713
  3. IRINOTECAN HCL [Suspect]
     Indication: RECTAL CANCER
     Dosage: 20 MG/ML, UNK
     Route: 042
     Dates: start: 20101124, end: 20110713

REACTIONS (1)
  - HAEMATURIA [None]
